FAERS Safety Report 8824935 (Version 3)
Quarter: 2013Q1

REPORT INFORMATION
  Report Type: Report from Study
  Country: US (occurrence: US)
  Receive Date: 20121004
  Receipt Date: 20130201
  Transmission Date: 20140127
  Serious: Yes (Other)
  Sender: FDA-Public Use
  Company Number: US-ROCHE-1075520

PATIENT
  Age: 54 None
  Sex: Male
  Weight: 110.32 kg

DRUGS (36)
  1. VEMURAFENIB [Suspect]
     Indication: METASTATIC MALIGNANT MELANOMA
     Route: 048
     Dates: start: 20120601
  2. ASPIRIN [Concomitant]
     Route: 065
  3. LIPITOR [Concomitant]
     Route: 048
  4. CLONIDINE [Concomitant]
     Route: 048
  5. FENTANYL [Concomitant]
     Dosage: 12 MCG Q. 72 HOURS, 25 MCG Q. 72 HOURS
     Route: 065
  6. FERROUS SULFATE [Concomitant]
     Route: 065
  7. FUROSEMIDE [Concomitant]
     Route: 065
  8. NEURONTIN [Concomitant]
     Route: 065
  9. INSULIN [Concomitant]
     Dosage: 24 UNITS Q.H.S.
     Route: 058
  10. ISOSORBIDE MONONITRATE [Concomitant]
     Route: 048
  11. LABETALOL [Concomitant]
     Route: 048
  12. LEVOTHYROXINE [Concomitant]
     Route: 065
  13. LISINOPRIL [Concomitant]
     Route: 065
  14. LORAZEPAM [Concomitant]
     Route: 048
     Dates: start: 20121101
  15. REGLAN [Concomitant]
     Route: 048
  16. OXYCODONE [Concomitant]
     Route: 065
     Dates: start: 20120629
  17. NITROGLYCERINE [Concomitant]
     Route: 062
  18. MULTIVITAMIN [Concomitant]
     Route: 048
  19. FISH OIL [Concomitant]
     Route: 048
  20. PROTONIX [Concomitant]
     Route: 065
  21. POTASSIUM CHLORIDE [Concomitant]
     Route: 065
  22. RANEXA [Concomitant]
     Route: 065
  23. SIMETHICONE [Concomitant]
     Route: 065
  24. SUCRALFATE [Concomitant]
     Route: 048
     Dates: start: 20120629
  25. ZOFRAN [Concomitant]
     Route: 065
     Dates: start: 20121101
  26. ZANTAC [Concomitant]
     Route: 065
     Dates: start: 20120823
  27. LEVOFLOXACIN [Concomitant]
     Route: 065
     Dates: start: 20121220
  28. HYCODONE (UNK INGREDIENTS) [Concomitant]
     Route: 065
     Dates: start: 20120823
  29. METOCLOPRAMIDE [Concomitant]
     Route: 048
  30. EUCERIN CREAM [Concomitant]
     Route: 061
  31. GABAPENTIN [Concomitant]
     Route: 048
  32. LIDODERM [Concomitant]
     Route: 061
  33. LANTUS [Concomitant]
     Route: 058
  34. NOVOLOG [Concomitant]
     Route: 058
  35. NITRO-DUR [Concomitant]
     Route: 062
  36. PANTOPRAZOLE SODIUM [Concomitant]
     Route: 065

REACTIONS (19)
  - Skin lesion [Not Recovered/Not Resolved]
  - Myalgia [Unknown]
  - Arthralgia [Not Recovered/Not Resolved]
  - Nausea [Unknown]
  - Fatigue [Unknown]
  - Rash [Unknown]
  - Diarrhoea [Unknown]
  - Vomiting [Unknown]
  - Decreased appetite [Unknown]
  - Visual impairment [Not Recovered/Not Resolved]
  - Headache [Unknown]
  - Thermal burn [Not Recovered/Not Resolved]
  - Hypophagia [Not Recovered/Not Resolved]
  - Weight decreased [Not Recovered/Not Resolved]
  - Skin papilloma [Not Recovered/Not Resolved]
  - Vision blurred [Not Recovered/Not Resolved]
  - Corrective lens user [Not Recovered/Not Resolved]
  - Hyperhidrosis [Not Recovered/Not Resolved]
  - Hot flush [Not Recovered/Not Resolved]
